FAERS Safety Report 8008959-0 (Version None)
Quarter: 2011Q4

REPORT INFORMATION
  Report Type: 
  Country: None (occurrence: None)
  Receive Date: 20111221
  Receipt Date: 20111212
  Transmission Date: 20120403
  Serious: Yes (Hospitalization, Other)
  Sender: FDA-Public Use
  Company Number: 2011MA017573

PATIENT
  Weight: 3.51 kg

DRUGS (2)
  1. OXYCODONE HCL [Suspect]
     Indication: DRUG ABUSE
  2. OXYCODONE HCL [Suspect]
     Indication: MATERNAL EXPOSURE DURING PREGNANCY

REACTIONS (8)
  - IRRITABILITY [None]
  - RESPIRATORY DISORDER [None]
  - AUTONOMIC NERVOUS SYSTEM IMBALANCE [None]
  - MATERNAL DRUGS AFFECTING FOETUS [None]
  - DRUG WITHDRAWAL SYNDROME NEONATAL [None]
  - NERVOUS SYSTEM DISORDER [None]
  - PREMATURE BABY [None]
  - GASTROINTESTINAL DISORDER [None]
